FAERS Safety Report 9692758 (Version 3)
Quarter: 2013Q4

REPORT INFORMATION
  Report Type: Spontaneous
  Country: JP (occurrence: JP)
  Receive Date: 20131118
  Receipt Date: 20131224
  Transmission Date: 20140711
  Serious: Yes (Other)
  Sender: FDA-Public Use
  Company Number: JP-JNJFOC-20131108080

PATIENT
  Age: 55 Year
  Sex: Female
  Weight: 40 kg

DRUGS (8)
  1. REMICADE [Suspect]
     Indication: CROHN^S DISEASE
     Route: 042
     Dates: start: 20131129
  2. REMICADE [Suspect]
     Indication: CROHN^S DISEASE
     Route: 042
     Dates: start: 20131025
  3. REMICADE [Suspect]
     Indication: CROHN^S DISEASE
     Route: 042
     Dates: start: 20131011
  4. PENTASA [Concomitant]
     Route: 048
  5. BIOFERMIN [Concomitant]
     Route: 048
  6. URSO [Concomitant]
     Route: 048
  7. ISCOTIN [Concomitant]
     Route: 048
  8. ADEROXAL [Concomitant]
     Route: 048

REACTIONS (1)
  - Small intestinal perforation [Recovering/Resolving]
